FAERS Safety Report 4493699-5 (Version None)
Quarter: 2004Q4

REPORT INFORMATION
  Report Type: 
  Country: None (occurrence: None)
  Receive Date: 20041103
  Receipt Date: 20041103
  Transmission Date: 20050328
  Serious: Yes (Hospitalization)
  Sender: FDA-Public Use
  Company Number: None

PATIENT
  Age: 54 Year
  Sex: Male
  Weight: 64 kg

DRUGS (10)
  1. GATIFLOXACIN [Suspect]
     Indication: WOUND INFECTION
     Dosage: 400 MG QD ORAL
     Route: 048
     Dates: start: 20040217, end: 20040227
  2. FELODIPINE [Concomitant]
  3. HYDRALAZINE [Concomitant]
  4. LORAZEPAM [Concomitant]
  5. INSULIN [Concomitant]
  6. QUETIAPINE [Concomitant]
  7. RANITIDINE [Concomitant]
  8. MULTI-VITAMIN [Concomitant]
  9. PHENYTOIN [Concomitant]
  10. CODEINE 30 WITH ACETAMINOPHEN 300 [Concomitant]

REACTIONS (8)
  - AGITATION [None]
  - BLOOD POTASSIUM INCREASED [None]
  - CONFUSIONAL STATE [None]
  - DISORIENTATION [None]
  - FAECAL OCCULT BLOOD POSITIVE [None]
  - HAEMOPTYSIS [None]
  - HYPOTENSION [None]
  - MOUTH HAEMORRHAGE [None]
